FAERS Safety Report 10998094 (Version 4)
Quarter: 2015Q2

REPORT INFORMATION
  Report Type: Spontaneous
  Country: SA (occurrence: SA)
  Receive Date: 20150408
  Receipt Date: 20150505
  Transmission Date: 20150821
  Serious: Yes (Death, Hospitalization)
  Sender: FDA-Public Use
  Company Number: SA-B.I. PHARMACEUTICALS,INC./RIDGEFIELD-2015-BI-18357BI

PATIENT
  Age: 51 Year
  Sex: Female

DRUGS (1)
  1. PRADAXA [Suspect]
     Active Substance: DABIGATRAN ETEXILATE MESYLATE
     Indication: DEEP VEIN THROMBOSIS
     Dosage: 220 MG
     Route: 048

REACTIONS (4)
  - Renal impairment [Unknown]
  - Off label use [Unknown]
  - Cerebral haemorrhage [Fatal]
  - Cerebral haemorrhage [Unknown]
